FAERS Safety Report 7649220-3 (Version None)
Quarter: 2011Q3

REPORT INFORMATION
  Report Type: 
  Country: None (occurrence: None)
  Receive Date: 20110726
  Receipt Date: 20110719
  Transmission Date: 20111222
  Serious: Yes (Hospitalization)
  Sender: FDA-Public Use
  Company Number: TPA2011A03989

PATIENT
  Age: 51 Year
  Sex: Male
  Weight: 136.9863 kg

DRUGS (1)
  1. ACTOS [Suspect]
     Indication: TYPE 2 DIABETES MELLITUS
     Dosage: 15 MG, 1 IN 1 D, PER ORAL ; 45 MG, 1 IN 1 D, PER ORAL
     Route: 048
     Dates: start: 20060707

REACTIONS (1)
  - BLADDER TRANSITIONAL CELL CARCINOMA [None]
